FAERS Safety Report 10550490 (Version 2)
Quarter: 2014Q4

REPORT INFORMATION
  Report Type: Spontaneous
  Country: US (occurrence: US)
  Receive Date: 20141029
  Receipt Date: 20141029
  Transmission Date: 20150529
  Serious: No
  Sender: FDA-Public Use
  Company Number: US-TEVA-484527USA

PATIENT
  Sex: Female

DRUGS (17)
  1. CORTICOSTEROIDS [Concomitant]
     Active Substance: CORTICOSTEROID NOS
  2. HUMALOG [Concomitant]
     Active Substance: INSULIN LISPRO
  3. LANTUS [Concomitant]
     Active Substance: INSULIN GLARGINE
  4. PROVIGIL [Suspect]
     Active Substance: MODAFINIL
     Dates: start: 2005
  5. TRAMADOL [Concomitant]
     Active Substance: TRAMADOL
  6. FENOFIBRATE. [Concomitant]
     Active Substance: FENOFIBRATE
  7. COLESTIPOL [Concomitant]
     Active Substance: COLESTIPOL
  8. PROVIGIL [Suspect]
     Active Substance: MODAFINIL
  9. PENICILLIN [Concomitant]
     Active Substance: PENICILLIN
  10. ASMANEX [Concomitant]
     Active Substance: MOMETASONE FUROATE
  11. LEVOTHYROXINE [Concomitant]
     Active Substance: LEVOTHYROXINE
  12. VENTOLIN [Concomitant]
     Active Substance: ALBUTEROL SULFATE
  13. LEXAPRO [Concomitant]
     Active Substance: ESCITALOPRAM OXALATE
  14. BENZONATATE. [Concomitant]
     Active Substance: BENZONATATE
  15. CLOPIDOGREL [Concomitant]
     Active Substance: CLOPIDOGREL BISULFATE
  16. VITAMIN D [Concomitant]
     Active Substance: CHOLECALCIFEROL
  17. CELEBREX [Concomitant]
     Active Substance: CELECOXIB

REACTIONS (6)
  - Fatigue [Recovered/Resolved]
  - Abdominal discomfort [Unknown]
  - Somnolence [Unknown]
  - Fatigue [Unknown]
  - Drug ineffective [Unknown]
  - Somnolence [Recovered/Resolved]

NARRATIVE: CASE EVENT DATE: 20140401
